FAERS Safety Report 16025461 (Version 1)
Quarter: 2019Q1

REPORT INFORMATION
  Report Type: Spontaneous
  Country: CN (occurrence: CN)
  Receive Date: 20190301
  Receipt Date: 20190301
  Transmission Date: 20190418
  Serious: Yes (Other)
  Sender: FDA-Public Use
  Company Number: CN-BAXTER-2019BAX004143

PATIENT
  Age: 63 Year
  Sex: Male
  Weight: 80 kg

DRUGS (6)
  1. BICUN [Suspect]
     Active Substance: EDARAVONE
     Indication: ANTIOXIDANT THERAPY
     Route: 041
     Dates: start: 20190112, end: 20190124
  2. BICUN [Suspect]
     Active Substance: EDARAVONE
     Dosage: DOSE RE-INTRODUCED
     Route: 041
  3. 20% MANNITOL INJECTION [Suspect]
     Active Substance: MANNITOL
     Dosage: DOSE RE-INTRODUCED
     Route: 041
  4. SODIUM CHLORIDE. [Suspect]
     Active Substance: SODIUM CHLORIDE
     Dosage: DOSE RE-INTRODUCED?SOLVENT FOR EDARAVONE INJECTION
     Route: 041
  5. 20% MANNITOL INJECTION [Suspect]
     Active Substance: MANNITOL
     Indication: BRAIN OEDEMA
     Route: 041
     Dates: start: 20190112, end: 20190121
  6. SODIUM CHLORIDE. [Suspect]
     Active Substance: SODIUM CHLORIDE
     Indication: MEDICATION DILUTION
     Dosage: SOLVENT FOR EDARAVONE INJECTION
     Route: 041
     Dates: start: 20190112, end: 20190124

REACTIONS (1)
  - Renal impairment [Recovered/Resolved]

NARRATIVE: CASE EVENT DATE: 20190120
